FAERS Safety Report 4909778-1 (Version None)
Quarter: 2006Q1

REPORT INFORMATION
  Report Type: 
  Country: None (occurrence: None)
  Receive Date: 20060208
  Receipt Date: 20060130
  Transmission Date: 20060701
  Serious: Yes (Hospitalization, Other)
  Sender: FDA-Public Use
  Company Number: 2005103656

PATIENT
  Age: 55 Year
  Sex: Female

DRUGS (5)
  1. TIKOSYN [Suspect]
     Indication: ATRIAL FIBRILLATION
     Dosage: 1000 MCG (500 MCG, 2 IN 1 D)
     Dates: start: 20050712
  2. COENZYME Q10 [Suspect]
     Indication: ARRHYTHMIA
     Dosage: 600 MG (300 MG, 2 IN 1 D),
     Dates: start: 20060101
  3. KEFLEX [Concomitant]
  4. LOPRESSOR [Concomitant]
  5. ATENOLOL [Concomitant]

REACTIONS (13)
  - ASTHENIA [None]
  - ATRIAL FIBRILLATION [None]
  - BLOOD PRESSURE INCREASED [None]
  - DRUG INTERACTION [None]
  - DYSPNOEA [None]
  - EXTRASYSTOLES [None]
  - HEADACHE [None]
  - MALAISE [None]
  - NASOPHARYNGITIS [None]
  - PAIN IN EXTREMITY [None]
  - PHARMACEUTICAL PRODUCT COMPLAINT [None]
  - PNEUMONIA [None]
  - SKIN LACERATION [None]
